FAERS Safety Report 15968590 (Version 1)
Quarter: 2019Q1

REPORT INFORMATION
  Report Type: Spontaneous
  Country: FR (occurrence: FR)
  Receive Date: 20190215
  Receipt Date: 20190215
  Transmission Date: 20190418
  Serious: Yes (Other)
  Sender: FDA-Public Use
  Company Number: FR-PFIZER INC-2019059342

PATIENT
  Age: 15 Year
  Sex: Female

DRUGS (2)
  1. METHOTREXATE SODIUM. [Suspect]
     Active Substance: METHOTREXATE SODIUM
     Indication: UVEITIS
     Route: 065
  2. HUMIRA [Suspect]
     Active Substance: ADALIMUMAB
     Indication: UVEITIS
     Dosage: UNK
     Route: 058

REACTIONS (4)
  - Uveitis [Unknown]
  - Drug intolerance [Unknown]
  - Keratitis [Unknown]
  - Product used for unknown indication [Unknown]
